FAERS Safety Report 4897615-3 (Version None)
Quarter: 2006Q1

REPORT INFORMATION
  Report Type: 
  Country: None (occurrence: None)
  Receive Date: 20060201
  Receipt Date: 20060118
  Transmission Date: 20060701
  Serious: Yes (Other)
  Sender: FDA-Public Use
  Company Number: JP-JNJFOC-20060105275

PATIENT

DRUGS (3)
  1. DUROTEP [Suspect]
     Indication: CANCER PAIN
     Route: 062
  2. SULPIRIDE [Concomitant]
  3. LACTOBACILLUS CASEL [Concomitant]

REACTIONS (2)
  - ALANINE AMINOTRANSFERASE INCREASED [None]
  - ASPARTATE AMINOTRANSFERASE INCREASED [None]
